FAERS Safety Report 4657627-1 (Version None)
Quarter: 2005Q2

REPORT INFORMATION
  Report Type: 
  Country: None (occurrence: None)
  Receive Date: 20050510
  Receipt Date: 20050503
  Transmission Date: 20051028
  Serious: Yes (Other)
  Sender: FDA-Public Use
  Company Number: PHBS2005NL06366

PATIENT
  Age: 9 Year
  Sex: Male

DRUGS (2)
  1. RISPERDAL [Concomitant]
  2. RITALIN [Suspect]
     Dosage: 15 MG/DAY
     Route: 048

REACTIONS (1)
  - URINARY RETENTION [None]
